FAERS Safety Report 4935439-9 (Version None)
Quarter: 2006Q1

REPORT INFORMATION
  Report Type: 
  Country: None (occurrence: None)
  Receive Date: 20060302
  Receipt Date: 20060209
  Transmission Date: 20060701
  Serious: No
  Sender: FDA-Public Use
  Company Number: US200602002497

PATIENT
  Age: 52 Year
  Sex: Male

DRUGS (1)
  1. CYMBALTA [Suspect]
     Dosage: 120 MG
     Dates: start: 20050701

REACTIONS (1)
  - JAUNDICE [None]
